FAERS Safety Report 7775206-4 (Version None)
Quarter: 2011Q3

REPORT INFORMATION
  Report Type: 
  Country: None (occurrence: None)
  Receive Date: 20110923
  Receipt Date: 20110920
  Transmission Date: 20111222
  Serious: Yes (Hospitalization, Other)
  Sender: FDA-Public Use
  Company Number: US-BRISTOL-MYERS SQUIBB COMPANY-16077679

PATIENT
  Age: 53 Year
  Sex: Female

DRUGS (1)
  1. SPRYCEL [Suspect]
     Dosage: RESTARTED 4 DAYS LATER
     Dates: start: 20110601

REACTIONS (11)
  - CARDIAC FAILURE CONGESTIVE [None]
  - DECREASED APPETITE [None]
  - PLEURAL EFFUSION [None]
  - VOMITING [None]
  - CHEST DISCOMFORT [None]
  - DIARRHOEA [None]
  - DIZZINESS [None]
  - FALL [None]
  - DYSPNOEA [None]
  - HYPOTENSION [None]
  - PARAESTHESIA [None]
